FAERS Safety Report 7528730-3 (Version None)
Quarter: 2011Q2

REPORT INFORMATION
  Report Type: 
  Country: None (occurrence: None)
  Receive Date: 20110607
  Receipt Date: 20110602
  Transmission Date: 20111010
  Serious: Yes (Other)
  Sender: FDA-Public Use
  Company Number: US-GENZYME-THYM-1002508

PATIENT
  Age: 41 Year

DRUGS (4)
  1. SIROLIMUS [Concomitant]
     Indication: IMMUNOSUPPRESSION
  2. TACROLIMUS [Concomitant]
     Indication: IMMUNOSUPPRESSION
  3. MYCOPHENOLATE MEFETIL [Concomitant]
     Indication: IMMUNOSUPPRESSION
  4. THYMOGLOBULIN [Suspect]
     Indication: PROPHYLAXIS AGAINST TRANSPLANT REJECTION
     Route: 042

REACTIONS (2)
  - URETERIC STENOSIS [None]
  - RENAL IMPAIRMENT [None]
